FAERS Safety Report 9452092 (Version 1)
Quarter: 2013Q3

REPORT INFORMATION
  Report Type: Spontaneous
  Country: US (occurrence: US)
  Receive Date: 20130812
  Receipt Date: 20130812
  Transmission Date: 20140515
  Serious: No
  Sender: FDA-Public Use
  Company Number: US-BIOGENIDEC-2013BI073527

PATIENT
  Sex: Female

DRUGS (2)
  1. TYSABRI [Suspect]
     Indication: MULTIPLE SCLEROSIS
     Route: 042
     Dates: start: 20111223
  2. AVONEX [Concomitant]
     Indication: MULTIPLE SCLEROSIS
     Route: 030
     Dates: start: 20050427

REACTIONS (7)
  - Frustration [Unknown]
  - Choking [Unknown]
  - Central nervous system lesion [Unknown]
  - Hypoaesthesia [Unknown]
  - Gait disturbance [Unknown]
  - Emotional distress [Unknown]
  - Multiple sclerosis relapse [Unknown]
